FAERS Safety Report 9275123 (Version 2)
Quarter: 2013Q2

REPORT INFORMATION
  Report Type: Spontaneous
  Country: JP (occurrence: JP)
  Receive Date: 20130507
  Receipt Date: 20130510
  Transmission Date: 20140414
  Serious: Yes (Life-Threatening, Hospitalization)
  Sender: FDA-Public Use
  Company Number: JP-CELGENEUS-087-21660-13050185

PATIENT
  Age: 69 Year
  Sex: Male
  Weight: 53 kg

DRUGS (12)
  1. ABRAXANE [Suspect]
     Indication: LUNG NEOPLASM MALIGNANT
     Dosage: 150 MILLIGRAM
     Route: 041
     Dates: start: 20130417, end: 20130417
  2. EXFORGE [Concomitant]
     Indication: HYPERTENSION
     Route: 048
     Dates: start: 20121223, end: 20130420
  3. AMARYL [Concomitant]
     Indication: DIABETES MELLITUS
     Dosage: 1 MILLIGRAM
     Route: 048
     Dates: start: 20121223
  4. GLACTIV [Concomitant]
     Indication: DIABETES MELLITUS
     Dosage: 50 MILLIGRAM
     Route: 048
     Dates: start: 20121223
  5. ACTOS [Concomitant]
     Indication: DIABETES MELLITUS
     Dosage: 30 MILLIGRAM
     Route: 048
     Dates: start: 20121223
  6. SEIBULE [Concomitant]
     Indication: DIABETES MELLITUS
     Dosage: 150 MILLIGRAM
     Route: 048
     Dates: start: 20121223
  7. PROTECADIN [Concomitant]
     Indication: GASTRITIS
     Dosage: 20 MILLIGRAM
     Route: 048
     Dates: start: 20130313
  8. CIPROFLOXACIN [Concomitant]
     Indication: PYREXIA
     Route: 065
     Dates: start: 20130421
  9. CALONAL [Concomitant]
     Indication: PYREXIA
     Route: 065
     Dates: start: 20130421
  10. RECOMODULIN [Concomitant]
     Indication: PRODUCT USED FOR UNKNOWN INDICATION
     Dosage: 19200 UNITS
     Route: 065
     Dates: end: 20130430
  11. NAIXAN [Concomitant]
     Indication: PRODUCT USED FOR UNKNOWN INDICATION
     Dosage: 6 TABLET
     Route: 048
     Dates: end: 20130430
  12. FINIBAX [Concomitant]
     Indication: BACTERIAL INFECTION
     Dosage: 1.5 GRAM
     Route: 048
     Dates: end: 20130430

REACTIONS (1)
  - Disseminated intravascular coagulation [Recovering/Resolving]
